FAERS Safety Report 5343561-0 (Version None)
Quarter: 2007Q2

REPORT INFORMATION
  Report Type: 
  Country: None (occurrence: None)
  Receive Date: 20070531
  Receipt Date: 20070517
  Transmission Date: 20071010
  Serious: Yes (Hospitalization)
  Sender: FDA-Public Use
  Company Number: 2007RR-07689

PATIENT
  Age: 51 Year
  Sex: Male

DRUGS (7)
  1. METFORMIN(METFORMIN) UNKNOWN [Suspect]
     Indication: DIABETES MELLITUS
     Dosage: 1.5 G, QD, ORAL
     Route: 048
     Dates: start: 20070309, end: 20070423
  2. CARBAMAZEPINE [Suspect]
     Indication: AFFECTIVE DISORDER
     Dosage: 200 MG, BID, ORAL
     Route: 048
     Dates: start: 20070308, end: 20070423
  3. ASPIRIN [Concomitant]
  4. ATENOLOL [Concomitant]
  5. CLOPIDOGREL [Concomitant]
  6. IRBESARTAN [Concomitant]
  7. PRAVASTATIN [Concomitant]

REACTIONS (2)
  - AFFECTIVE DISORDER [None]
  - RASH MACULO-PAPULAR [None]
